FAERS Safety Report 13500656 (Version 3)
Quarter: 2018Q4

REPORT INFORMATION
  Report Type: Spontaneous
  Country: US (occurrence: US)
  Receive Date: 20170501
  Receipt Date: 20181102
  Transmission Date: 20190204
  Serious: Yes (Hospitalization, Other)
  Sender: FDA-Public Use
  Company Number: US-ALLERGAN-1716592US

PATIENT
  Age: 41 Year
  Sex: Female

DRUGS (18)
  1. MESALAZINE UNK [Suspect]
     Active Substance: MESALAMINE
     Dosage: 0.12 G, SINGLE
     Route: 048
  2. MESALAZINE UNK [Suspect]
     Active Substance: MESALAMINE
     Dosage: 15 MG, SINGLE, DAY 1 AT 12:30
     Route: 048
  3. MESALAZINE UNK [Suspect]
     Active Substance: MESALAMINE
     Dosage: 2 MG, SINGLE, DAY 1 AT 11:00
     Route: 048
  4. MESALAZINE UNK [Suspect]
     Active Substance: MESALAMINE
     Dosage: 150 MG, SINGLE, DAY 1 AT 14:30
     Route: 048
  5. MESALAZINE UNK [Suspect]
     Active Substance: MESALAMINE
     Dosage: 1.08 G, SINGLE
     Route: 048
  6. MESALAZINE UNK [Suspect]
     Active Substance: MESALAMINE
     Dosage: 200 MG, SINGLE, DAY 1 AT 15:00
     Route: 048
  7. MESALAZINE UNK [Suspect]
     Active Substance: MESALAMINE
     Dosage: 1 MG, SINGLE, DAY 1 AT 10:30
     Route: 048
  8. MESALAZINE UNK [Suspect]
     Active Substance: MESALAMINE
     Dosage: 100 MG, SINGLE, DAY 1 AT 14:00
     Route: 048
  9. MESALAZINE UNK [Suspect]
     Active Substance: MESALAMINE
     Dosage: 500 MG, SINGLE, DAY 1 AT 16:00
     Route: 048
  10. MESALAZINE UNK [Suspect]
     Active Substance: MESALAMINE
     Dosage: 1000 MG, SINGLE, DAY 2 AT 11:00
     Route: 048
  11. MESALAZINE UNK [Suspect]
     Active Substance: MESALAMINE
     Dosage: 1000 MG, SINGLE, DAY 2 AT 13:00
     Route: 048
  12. MESALAZINE UNK [Suspect]
     Active Substance: MESALAMINE
     Indication: COLITIS ULCERATIVE
     Dosage: 4 G, UNK
     Route: 054
  13. MESALAZINE UNK [Suspect]
     Active Substance: MESALAMINE
     Dosage: 30 MG, SINGLE, DAY 1 AT 13:00
     Route: 048
  14. MESALAZINE UNK [Suspect]
     Active Substance: MESALAMINE
     Dosage: 4 MG, SINGLE, DAY 1 AT 11:30
     Route: 048
  15. MESALAZINE UNK [Suspect]
     Active Substance: MESALAMINE
     Dosage: 8 MG, SINGLE, DAY 1 AT 12:00
     Route: 048
  16. MESALAZINE UNK [Suspect]
     Active Substance: MESALAMINE
     Dosage: 60 MG, SINGLE, DAY 1 AT 13:30
     Route: 048
  17. MESALAZINE UNK [Suspect]
     Active Substance: MESALAMINE
     Dosage: 300 MG, SINGLE, DAY 1 AT 15:30
     Route: 048
  18. MESALAZINE UNK [Suspect]
     Active Substance: MESALAMINE
     Dosage: 500 MG, SINGLE, DAY 2 AT 9:00
     Route: 048

REACTIONS (10)
  - Forced expiratory volume decreased [Recovered/Resolved]
  - Wheezing [Recovered/Resolved]
  - Peak expiratory flow rate decreased [Recovered/Resolved]
  - Drug hypersensitivity [Recovered/Resolved]
  - Abdominal pain [Unknown]
  - Dyspnoea [Recovered/Resolved]
  - Chest discomfort [Recovered/Resolved]
  - Oedema peripheral [Unknown]
  - Contraindicated product prescribed [Unknown]
  - Wrong technique in product usage process [Unknown]
